FAERS Safety Report 23020442 (Version 1)
Quarter: 2023Q4

REPORT INFORMATION
  Report Type: Other
  Country: None (occurrence: FR)
  Receive Date: 20231003
  Receipt Date: 20231003
  Transmission Date: 20240109
  Serious: Yes (Hospitalization, Other)
  Sender: FDA-Public Use
  Company Number: FR-Marksans Pharma Limited-2146585

PATIENT
  Age: 44 Year
  Sex: Female

DRUGS (2)
  1. GABAPENTIN [Suspect]
     Active Substance: GABAPENTIN
     Indication: Product used for unknown indication
  2. KETAMINE [Suspect]
     Active Substance: KETAMINE
     Route: 065

REACTIONS (5)
  - Mucocutaneous haemorrhage [Recovered/Resolved]
  - Microcytic anaemia [Unknown]
  - Iron deficiency [Unknown]
  - Platelet aggregation abnormal [Recovered/Resolved]
  - Multisystem inflammatory syndrome [Recovered/Resolved]
